FAERS Safety Report 7869534-1 (Version None)
Quarter: 2011Q4

REPORT INFORMATION
  Report Type: 
  Country: None (occurrence: None)
  Receive Date: 20111028
  Receipt Date: 20110104
  Transmission Date: 20120403
  Serious: No
  Sender: FDA-Public Use
  Company Number: US-AMGEN-USASP2011001344

PATIENT
  Age: 62 Year
  Sex: Male
  Weight: 117.91 kg

DRUGS (3)
  1. ENBREL [Suspect]
     Indication: PRODUCT USED FOR UNKNOWN INDICATION
  2. HUMIRA [Suspect]
     Indication: PSORIASIS
     Dosage: 40 MG, Q2WK
     Dates: start: 20040101
  3. HUMIRA [Suspect]
     Indication: ARTHRITIS

REACTIONS (7)
  - PULMONARY CONGESTION [None]
  - PYREXIA [None]
  - PSORIASIS [None]
  - CHILLS [None]
  - INFLUENZA LIKE ILLNESS [None]
  - PRODUCTIVE COUGH [None]
  - HAEMOPTYSIS [None]
